FAERS Safety Report 23398274 (Version 1)
Quarter: 2024Q1

REPORT INFORMATION
  Report Type: Spontaneous
  Country: US (occurrence: US)
  Receive Date: 20240112
  Receipt Date: 20240112
  Transmission Date: 20240409
  Serious: No
  Sender: FDA-Public Use
  Company Number: US-PFIZER INC-202300396499

PATIENT
  Age: 61 Year
  Sex: Female

DRUGS (1)
  1. EUCRISA [Suspect]
     Active Substance: CRISABOROLE
     Dosage: APPLY DAILY TO AFFECTED AREAS
     Route: 061

REACTIONS (2)
  - Burning sensation [Unknown]
  - Off label use [Unknown]
